FAERS Safety Report 18275729 (Version 2)
Quarter: 2021Q3

REPORT INFORMATION
  Report Type: Spontaneous
  Country: US (occurrence: US)
  Receive Date: 20200917
  Receipt Date: 20210916
  Transmission Date: 20211014
  Serious: No
  Sender: FDA-Public Use
  Company Number: US-STRIDES ARCOLAB LIMITED-2020SP001444

PATIENT
  Age: 62 Year
  Sex: Female
  Weight: 68.03 kg

DRUGS (6)
  1. ACARBOSE. [Suspect]
     Active Substance: ACARBOSE
     Indication: HYPOTENSION
     Dosage: 50 MILLIGRAM, EACH MEAL
     Route: 065
  2. ACARBOSE. [Suspect]
     Active Substance: ACARBOSE
     Dosage: RAPIDLY TITRATING TO 100 MILLIGRAM AT MEAL TIME
     Route: 065
  3. PINDOLOL. [Concomitant]
     Active Substance: PINDOLOL
     Indication: BLOOD PRESSURE ABNORMAL
     Dosage: 5 MILLIGRAM, EACH DAY
     Route: 065
  4. COLECALCIFEROL [Concomitant]
     Active Substance: CHOLECALCIFEROL
     Indication: PRODUCT USED FOR UNKNOWN INDICATION
     Dosage: 1000 INTERNATIONAL UNIT PER DAY
     Route: 065
  5. OXYBUTYNIN. [Concomitant]
     Active Substance: OXYBUTYNIN CHLORIDE
     Indication: PRODUCT USED FOR UNKNOWN INDICATION
     Dosage: 5 MILLIGRAM, TID
     Route: 065
  6. CRANBERRY NS [Concomitant]
     Indication: PRODUCT USED FOR UNKNOWN INDICATION
     Dosage: 500 MILLIGRAM, TID
     Route: 065

REACTIONS (2)
  - Off label use [Unknown]
  - Flatulence [Unknown]
